FAERS Safety Report 4320105-3 (Version None)
Quarter: 2004Q1

REPORT INFORMATION
  Report Type: 
  Country: None (occurrence: None)
  Receive Date: 20040317
  Receipt Date: 20040309
  Transmission Date: 20041129
  Serious: Yes (Disabling, Other)
  Sender: FDA-Public Use
  Company Number: USA-2002-0001350

PATIENT
  Age: 52 Year
  Sex: Male

DRUGS (1)
  1. OXYCONTIN [Suspect]
     Indication: PAIN

REACTIONS (7)
  - ACTIVITIES OF DAILY LIVING IMPAIRED [None]
  - ANXIETY [None]
  - DRUG DEPENDENCE [None]
  - HEPATOCELLULAR DAMAGE [None]
  - MAJOR DEPRESSION [None]
  - PANIC DISORDER [None]
  - SLEEP DISORDER [None]
